FAERS Safety Report 9666205 (Version 3)
Quarter: 2014Q1

REPORT INFORMATION
  Report Type: Report from Study
  Country: MX (occurrence: MX)
  Receive Date: 20131104
  Receipt Date: 20140318
  Transmission Date: 20141002
  Serious: Yes (Other)
  Sender: FDA-Public Use
  Company Number: PHHY2013MX124729

PATIENT
  Age: 81 Year
  Sex: Male

DRUGS (8)
  1. DIOVAN [Suspect]
     Indication: HYPERTENSION
     Dosage: 1 DF(80MG), DAILY
     Route: 048
     Dates: start: 200409, end: 201012
  2. DIOVAN [Suspect]
     Dosage: 2 DF (80MG), DAILY
     Route: 048
     Dates: start: 201012, end: 201310
  3. DIOVAN [Suspect]
     Dosage: 3 DF (80MG), DAILY
     Route: 048
     Dates: start: 201310
  4. DIOVAN [Suspect]
     Dosage: 2 DF (80MG) DAILY
     Route: 048
     Dates: start: 20131031, end: 20140305
  5. DIOVAN [Suspect]
     Dosage: 0.5 DF (80MG) DAILY
     Route: 048
     Dates: start: 20140305
  6. PINAVERIUM BROMIDE [Concomitant]
     Indication: GASTROINTESTINAL INFLAMMATION
     Dosage: 2 UKN, DAILY
     Dates: start: 2010
  7. PINAVERIUM BROMIDE [Concomitant]
     Dosage: 1 UNK, DAILIY
  8. LIBERTRIM//TRIMEBUTINE [Concomitant]
     Indication: DIVERTICULUM INTESTINAL
     Dosage: 100 MG, Q12H
     Dates: start: 1995

REACTIONS (6)
  - Prostate cancer [Unknown]
  - Blood pressure increased [Recovered/Resolved]
  - Gastritis [Unknown]
  - Heart rate decreased [Not Recovered/Not Resolved]
  - Blood pressure decreased [Not Recovered/Not Resolved]
  - Wrong technique in drug usage process [Not Recovered/Not Resolved]
